FAERS Safety Report 9473597 (Version 1)
Quarter: 2013Q3

REPORT INFORMATION
  Report Type: Spontaneous
  Country: US (occurrence: US)
  Receive Date: 20130823
  Receipt Date: 20130823
  Transmission Date: 20140515
  Serious: Yes (Hospitalization)
  Sender: FDA-Public Use
  Company Number: US-BAYER-2013-101886

PATIENT
  Age: 39 Year
  Sex: Female

DRUGS (2)
  1. OCELLA [Suspect]
     Dosage: UNK
  2. TOPAMAX [Concomitant]

REACTIONS (1)
  - Pulmonary embolism [None]
